FAERS Safety Report 6234974-3 (Version None)
Quarter: 2009Q2

REPORT INFORMATION
  Report Type: 
  Country: None (occurrence: None)
  Receive Date: 20090608
  Receipt Date: 20090525
  Transmission Date: 20091009
  Serious: Yes (Other)
  Sender: FDA-Public Use
  Company Number: GAM-085-09-FR

PATIENT
  Age: 69 Year
  Sex: Male

DRUGS (8)
  1. TEGELINE     (HUMAN NORMAL IMMUNOGLOBULIN INTRAVENOUS ADMINISTRATION) [Suspect]
     Indication: LEWIS-SUMNER SYNDROME
     Dosage: 30 G I.V.
     Route: 042
     Dates: start: 20080721, end: 20080912
  2. TEGELINE (HUMAN NORMAL IMMUNOGLOBULIN FOR INTRAVENOUS ADMINISTRATION) [Suspect]
  3. TEGELINE (HUMAN NORMAL IMMUNOGLOBULIN FOR INTRAVENOUS ADMINISTRATION) [Suspect]
  4. OCTAGAM [Suspect]
     Indication: LEWIS-SUMNER SYNDROME
     Dosage: 30 G I.V.
     Route: 042
     Dates: start: 20081028, end: 20081219
  5. OCTAGAM [Suspect]
  6. KIOVIG (HUMAN NORMAL IMMUNOGLOBULIN FOR INTRAVENOUS ADMINISTRATION) BA [Suspect]
     Indication: LEWIS-SUMNER SYNDROME
     Dosage: 35 G I.V.
     Route: 042
     Dates: start: 20090202, end: 20090204
  7. KIOVIG (HUMAN NORMAL IMMUNOGLOBULIN FOR INTRAVENOUS ADMINISTRATION) BA [Suspect]
  8. KIOVIG (HUMAN NORMAL IMMUNOGLOBULIN FOR INTRAVENOUS ADMINISTRATION) BA [Suspect]

REACTIONS (3)
  - ECZEMA [None]
  - HYPERKERATOSIS PALMARIS AND PLANTARIS [None]
  - NAIL DISORDER [None]
